FAERS Safety Report 8972314 (Version 2)
Quarter: 2013Q1

REPORT INFORMATION
  Report Type: Spontaneous
  Country: FR (occurrence: FR)
  Receive Date: 20121218
  Receipt Date: 20130128
  Transmission Date: 20140127
  Serious: Yes (Other)
  Sender: FDA-Public Use
  Company Number: FR-ROCHE-1170839

PATIENT
  Age: 16 Year
  Sex: Female

DRUGS (8)
  1. XOLAIR [Suspect]
     Indication: ASTHMA
     Dosage: QMO, (ON OCT 2012 AND NOV 2012); VIAL
     Route: 058
     Dates: start: 20100719
  2. XOLAIR [Suspect]
     Route: 058
     Dates: start: 201210
  3. XOLAIR [Suspect]
     Route: 058
     Dates: start: 201211, end: 20121126
  4. SERETIDE [Concomitant]
  5. SINGULAIR [Concomitant]
  6. VENTOLINE [Concomitant]
  7. OMEPRAZOLE [Concomitant]
  8. AERIUS [Concomitant]

REACTIONS (3)
  - Malaise [Recovered/Resolved]
  - Loss of consciousness [Recovered/Resolved]
  - Headache [Recovered/Resolved]
